FAERS Safety Report 13791458 (Version 1)
Quarter: 2017Q3

REPORT INFORMATION
  Report Type: Spontaneous
  Country: US (occurrence: US)
  Receive Date: 20170725
  Receipt Date: 20170725
  Transmission Date: 20171127
  Serious: No
  Sender: FDA-Public Use
  Company Number: US-MYLANLABS-2017M1012256

PATIENT
  Age: 66 Year
  Sex: Male
  Weight: 77.98 kg

DRUGS (3)
  1. ATORVASTATIN CALCIUM TABLETS [Suspect]
     Active Substance: ATORVASTATIN CALCIUM
     Indication: BLOOD CHOLESTEROL INCREASED
     Dosage: 80 MG, HS
     Route: 048
     Dates: start: 20170119
  2. LISINOPRIL. [Suspect]
     Active Substance: LISINOPRIL
     Indication: BLOOD PRESSURE MANAGEMENT
     Dosage: 5 MG, QD
     Route: 048
     Dates: start: 20170119
  3. METOPROLOL SUCCINATE. [Suspect]
     Active Substance: METOPROLOL SUCCINATE
     Indication: BLOOD PRESSURE MANAGEMENT
     Dosage: 25 MG, QD
     Route: 048
     Dates: start: 20170119

REACTIONS (3)
  - Bone pain [Not Recovered/Not Resolved]
  - Myalgia [Not Recovered/Not Resolved]
  - Cough [Not Recovered/Not Resolved]

NARRATIVE: CASE EVENT DATE: 20170215
